FAERS Safety Report 7783839-4 (Version None)
Quarter: 2011Q3

REPORT INFORMATION
  Report Type: 
  Country: None (occurrence: None)
  Receive Date: 20110928
  Receipt Date: 20110922
  Transmission Date: 20111222
  Serious: Yes (Hospitalization, Other)
  Sender: FDA-Public Use
  Company Number: US-AMGEN-USASP2011049049

PATIENT
  Age: 71 Year
  Sex: Male

DRUGS (8)
  1. LEUKINE [Concomitant]
  2. VIDAZA [Concomitant]
     Dosage: UNK
     Dates: start: 20110808, end: 20110812
  3. VANCOMYCIN [Concomitant]
  4. ATENOLOL [Concomitant]
  5. MOXIFLOXACIN [Concomitant]
  6. RIFAMPIN [Concomitant]
  7. OXACILLIN [Suspect]
  8. NEUPOGEN [Suspect]
     Indication: AGRANULOCYTOSIS
     Dosage: 300 MUG, QD
     Route: 058
     Dates: start: 20110811, end: 20110921

REACTIONS (3)
  - CELLULITIS [None]
  - RENAL FAILURE ACUTE [None]
  - THERAPEUTIC RESPONSE DECREASED [None]
